FAERS Safety Report 14781309 (Version 1)
Quarter: 2018Q2

REPORT INFORMATION
  Report Type: Spontaneous
  Country: HU (occurrence: HU)
  Receive Date: 20180419
  Receipt Date: 20180419
  Transmission Date: 20180711
  Serious: Yes (Hospitalization)
  Sender: FDA-Public Use
  Company Number: PHHY2017HU202414

PATIENT
  Sex: Female

DRUGS (4)
  1. PERJETA [Suspect]
     Active Substance: PERTUZUMAB
     Indication: BREAST CANCER METASTATIC
     Dosage: 840 MG, QW (LOADING DOSE)
     Route: 042
     Dates: start: 2017
  2. PERJETA [Suspect]
     Active Substance: PERTUZUMAB
     Dosage: 420 MG, QW (MAINTAINING DOSE)
     Route: 042
     Dates: start: 2017
  3. HERCEPTIN [Suspect]
     Active Substance: TRASTUZUMAB
     Indication: BREAST CANCER METASTATIC
     Dosage: 8 MG/KG, QW
     Route: 042
     Dates: start: 2017
  4. DOCETAXEL. [Suspect]
     Active Substance: DOCETAXEL
     Indication: PRODUCT USED FOR UNKNOWN INDICATION
     Dosage: 75 MG/M2, UNK
     Route: 042

REACTIONS (4)
  - Dyspnoea [Recovered/Resolved]
  - Dry skin [Recovered/Resolved]
  - Peripheral swelling [Recovered/Resolved]
  - Pleural thickening [Not Recovered/Not Resolved]

NARRATIVE: CASE EVENT DATE: 20171103
